FAERS Safety Report 25076717 (Version 1)
Quarter: 2025Q1

REPORT INFORMATION
  Report Type: Spontaneous
  Country: VN (occurrence: VN)
  Receive Date: 20250313
  Receipt Date: 20250313
  Transmission Date: 20250408
  Serious: Yes (Other)
  Sender: BOEHRINGER INGELHEIM
  Company Number: VN-BoehringerIngelheim-2025-BI-014560

PATIENT

DRUGS (1)
  1. AFATINIB [Suspect]
     Active Substance: AFATINIB
     Indication: Malignant neoplasm progression

REACTIONS (1)
  - Malignant neoplasm progression [Unknown]
